FAERS Safety Report 9057058 (Version 1)
Quarter: 2013Q1

REPORT INFORMATION
  Report Type: Spontaneous
  Country: US (occurrence: US)
  Receive Date: 20130131
  Receipt Date: 20130131
  Transmission Date: 20140127
  Serious: Yes (Hospitalization)
  Sender: FDA-Public Use
  Company Number: US-B.I. PHARMACEUTICALS,INC./RIDGEFIELD-2013-BI-02187GD

PATIENT
  Age: 47 Year
  Sex: Male

DRUGS (2)
  1. PRAMIPEXOLE [Suspect]
     Indication: PARKINSON^S DISEASE
     Dosage: HIGH DOSAGE
  2. LEVODOPA [Suspect]
     Indication: PARKINSON^S DISEASE
     Dosage: HIGH DOSAGE

REACTIONS (1)
  - Mania [Recovered/Resolved]
